FAERS Safety Report 4590891-6 (Version None)
Quarter: 2005Q1

REPORT INFORMATION
  Report Type: 
  Country: None (occurrence: None)
  Receive Date: 20050225
  Receipt Date: 20041101
  Transmission Date: 20050727
  Serious: No
  Sender: FDA-Public Use
  Company Number: US-GLAXOSMITHKLINE-A0532048A

PATIENT
  Age: 50 Year
  Sex: Male

DRUGS (9)
  1. ZIAGEN [Suspect]
     Indication: HIV INFECTION
     Dosage: 1TAB TWICE PER DAY
     Route: 048
     Dates: end: 20041031
  2. LEXIVA [Concomitant]
  3. RITONAVIR [Concomitant]
  4. VIREAD [Concomitant]
  5. NEXIUM [Concomitant]
  6. LISINOPRIL [Concomitant]
  7. NIASPAN [Concomitant]
  8. TRAZODONE HCL [Concomitant]
  9. INH [Concomitant]

REACTIONS (4)
  - BURNING SENSATION [None]
  - COUGH [None]
  - FATIGUE [None]
  - HYPERSENSITIVITY [None]
